FAERS Safety Report 19975232 (Version 1)
Quarter: 2021Q4

REPORT INFORMATION
  Report Type: Spontaneous
  Country: US (occurrence: US)
  Receive Date: 20211020
  Receipt Date: 20211020
  Transmission Date: 20220304
  Serious: No
  Sender: FDA-Public Use
  Company Number: US-ALLERGAN-2049068US

PATIENT
  Sex: Male

DRUGS (6)
  1. LINZESS [Suspect]
     Active Substance: LINACLOTIDE
     Indication: Constipation
     Dosage: 72 ?G, QD
     Route: 048
  2. LINZESS [Suspect]
     Active Substance: LINACLOTIDE
     Indication: Irritable bowel syndrome
  3. KLONOPIN [Concomitant]
     Active Substance: CLONAZEPAM
  4. CELEBREX [Concomitant]
     Active Substance: CELECOXIB
  5. VITAMINS [Concomitant]
     Active Substance: VITAMINS
  6. Pancreatic digestive enzyme [Concomitant]

REACTIONS (4)
  - Off label use [Unknown]
  - Functional gastrointestinal disorder [Not Recovered/Not Resolved]
  - Therapeutic product effect decreased [Unknown]
  - Product label issue [Unknown]
